FAERS Safety Report 9034171 (Version 1)
Quarter: 2013Q1

REPORT INFORMATION
  Report Type: Spontaneous
  Country: US (occurrence: None)
  Receive Date: 20130114
  Receipt Date: 20130114
  Transmission Date: 20140127
  Serious: Yes (Hospitalization, Other)
  Sender: FDA-Public Use
  Company Number: ACO_33624_2013

PATIENT
  Age: 57 Year
  Sex: Male
  Weight: 90.7 kg

DRUGS (5)
  1. AMPYRA (DALFAMPRIDINE) TABLET, 10MG [Suspect]
     Indication: PRODUCT USED FOR UNKNOWN INDICATION
     Dates: end: 20120124
  2. AVONEX (INTERFERON BETA-1A) [Concomitant]
  3. OTHER ANXIOLYTICS [Concomitant]
  4. OTHER THERAPEUTIC PRODUCTS [Concomitant]
  5. VITAMINS [Concomitant]

REACTIONS (9)
  - Convulsion [None]
  - Urinary retention [None]
  - Lower limb fracture [None]
  - Fall [None]
  - Tremor [None]
  - Diarrhoea [None]
  - Gait disturbance [None]
  - Urinary tract infection [None]
  - Dizziness [None]
